FAERS Safety Report 11672057 (Version 2)
Quarter: 2016Q3

REPORT INFORMATION
  Report Type: Spontaneous
  Country: FR (occurrence: FR)
  Receive Date: 20151028
  Receipt Date: 20160701
  Transmission Date: 20161109
  Serious: Yes (Hospitalization)
  Sender: FDA-Public Use
  Company Number: FR-ROCHE-1650189

PATIENT
  Age: 58 Year
  Sex: Male

DRUGS (7)
  1. CELLCEPT [Suspect]
     Active Substance: MYCOPHENOLATE MOFETIL\MYCOPHENOLATE MOFETIL HYDROCHLORIDE
     Indication: NEPHROPATHY
     Route: 048
  2. ESOMEPRAZOLE [Concomitant]
     Active Substance: ESOMEPRAZOLE
  3. EXFORGE [Concomitant]
     Active Substance: AMLODIPINE BESYLATE\VALSARTAN
  4. OZURDEX [Suspect]
     Active Substance: DEXAMETHASONE
     Indication: MACULAR OEDEMA
     Dosage: 700 MCG, INTRAVITREAL IMPLANT WITH DISPENSER, E74087
     Route: 031
     Dates: start: 20150211, end: 20150211
  5. METFORMIN [Concomitant]
     Active Substance: METFORMIN HYDROCHLORIDE
  6. DIFFU K [Concomitant]
     Active Substance: POTASSIUM CHLORIDE
  7. LANTUS [Concomitant]
     Active Substance: INSULIN GLARGINE

REACTIONS (8)
  - Endophthalmitis [Recovered/Resolved]
  - Oedema [Recovered/Resolved]
  - Bacterial sepsis [Recovered/Resolved]
  - Peau d^orange [Recovered/Resolved]
  - Blindness [Not Recovered/Not Resolved]
  - Erythema of eyelid [Recovered/Resolved]
  - Vomiting [Recovered/Resolved]
  - Eye pain [Recovered/Resolved]

NARRATIVE: CASE EVENT DATE: 20150213
